FAERS Safety Report 24428156 (Version 1)
Quarter: 2024Q4

REPORT INFORMATION
  Report Type: Spontaneous
  Country: CA (occurrence: CA)
  Receive Date: 20241011
  Receipt Date: 20241011
  Transmission Date: 20250115
  Serious: Yes (Life-Threatening)
  Sender: PFIZER
  Company Number: CA-PFIZER INC-202400273536

PATIENT
  Age: 46 Year
  Sex: Male

DRUGS (4)
  1. ROCURONIUM BROMIDE [Suspect]
     Active Substance: ROCURONIUM BROMIDE
  2. CEFAZOLIN [Suspect]
     Active Substance: CEFAZOLIN
  3. FENTANYL [Suspect]
     Active Substance: FENTANYL
  4. PROPOFOL [Suspect]
     Active Substance: PROPOFOL
     Route: 065

REACTIONS (1)
  - Procedural hypotension [Recovered/Resolved]
